FAERS Safety Report 9740203 (Version 1)
Quarter: 2013Q4

REPORT INFORMATION
  Report Type: Spontaneous
  Country: US (occurrence: US)
  Receive Date: 20131209
  Receipt Date: 20131209
  Transmission Date: 20140711
  Serious: No
  Sender: FDA-Public Use
  Company Number: US-PFIZER INC-2013346276

PATIENT
  Age: 41 Year
  Sex: Female
  Weight: 81.63 kg

DRUGS (6)
  1. PRISTIQ [Suspect]
     Indication: DEPRESSION
     Dosage: 100 MG, DAILY
  2. FENTANYL [Suspect]
     Dosage: 50 UG, EVERY THREE DAYS
  3. FLEXERIL [Concomitant]
     Dosage: UNK, 3X/DAY
  4. ABILIFY [Concomitant]
     Dosage: 20 MG, DAILY
  5. DILAUDID [Concomitant]
     Dosage: UNK
  6. DEXTROSTAT [Concomitant]
     Dosage: 10 MG, 3X/DAY

REACTIONS (1)
  - Accident [Unknown]
